FAERS Safety Report 21552643 (Version 1)
Quarter: 2022Q4

REPORT INFORMATION
  Report Type: Spontaneous
  Country: IL (occurrence: IL)
  Receive Date: 20221104
  Receipt Date: 20221104
  Transmission Date: 20230113
  Serious: Yes (Death, Hospitalization, Other)
  Sender: FDA-Public Use
  Company Number: IL-AMGEN-ISRSP2022187580

PATIENT

DRUGS (4)
  1. BEVACIZUMAB [Suspect]
     Active Substance: BEVACIZUMAB
     Indication: Colorectal cancer
     Dosage: UNK
     Route: 065
  2. BEVACIZUMAB [Suspect]
     Active Substance: BEVACIZUMAB
     Indication: Gastric cancer
  3. PANITUMUMAB [Suspect]
     Active Substance: PANITUMUMAB
     Indication: Colorectal cancer
     Dosage: UNK
     Route: 065
  4. PANITUMUMAB [Suspect]
     Active Substance: PANITUMUMAB
     Indication: Gastric cancer

REACTIONS (11)
  - Death [Fatal]
  - COVID-19 [Fatal]
  - Lower gastrointestinal haemorrhage [Unknown]
  - Upper gastrointestinal haemorrhage [Unknown]
  - Change of bowel habit [Unknown]
  - Intestinal obstruction [Unknown]
  - Anaemia [Unknown]
  - Intestinal perforation [Unknown]
  - Vomiting [Unknown]
  - Weight decreased [Unknown]
  - Abdominal pain [Unknown]
